FAERS Safety Report 7226856-5 (Version None)
Quarter: 2011Q1

REPORT INFORMATION
  Report Type: 
  Country: None (occurrence: None)
  Receive Date: 20110114
  Receipt Date: 20101223
  Transmission Date: 20110831
  Serious: Yes (Hospitalization, Other)
  Sender: FDA-Public Use
  Company Number: US-BAYER-200938676NA

PATIENT
  Sex: Female
  Weight: 59 kg

DRUGS (16)
  1. CLOBETASOL PROPIONATE [Concomitant]
     Indication: SKIN IRRITATION
     Dates: start: 20071001
  2. VICODIN [Concomitant]
     Indication: SLEEP DISORDER THERAPY
     Route: 065
  3. ASCORBIC ACID [Concomitant]
     Route: 065
  4. SYMBICORT [Concomitant]
     Route: 065
     Dates: start: 20000101
  5. UNCODEABLE ^UNCLASSIFIABLE^ [Concomitant]
     Route: 065
     Dates: start: 20000101
  6. YASMIN [Suspect]
     Indication: PRODUCT USED FOR UNKNOWN INDICATION
     Dosage: 12 WEEKS, FOLLOWED BY A 7 DAYS TABLET FREE INTERVAL
     Route: 048
     Dates: start: 20010101, end: 20070101
  7. MIRENA [Suspect]
     Indication: PRODUCT USED FOR UNKNOWN INDICATION
     Dosage: DAILY DOSE 20 A?G
     Route: 015
     Dates: start: 20080101
  8. ALBUTEROL [Concomitant]
     Route: 065
     Dates: start: 20000101
  9. NSAID'S [Concomitant]
     Route: 065
  10. GAS-X [Concomitant]
     Indication: SLEEP DISORDER THERAPY
     Route: 065
     Dates: start: 20071216
  11. UNKNOWN DRUG [Concomitant]
     Indication: MIGRAINE
     Route: 065
  12. VANCERIL [Concomitant]
     Route: 065
     Dates: start: 20000101
  13. ADVIL [Concomitant]
     Indication: PAIN
     Route: 065
     Dates: start: 20071215
  14. YAZ [Suspect]
     Indication: PRODUCT USED FOR UNKNOWN INDICATION
     Dosage: UNK
     Dates: start: 20061024, end: 20070708
  15. SEREVENT [Concomitant]
     Route: 065
     Dates: start: 20000101
  16. TUMS [CALCIUM CARBONATE] [Concomitant]
     Indication: PAIN
     Route: 065
     Dates: start: 20071215

REACTIONS (7)
  - DYSPAREUNIA [None]
  - CHEST PAIN [None]
  - URINARY TRACT INFECTION [None]
  - BLADDER DILATATION [None]
  - ABDOMINAL PAIN LOWER [None]
  - DYSURIA [None]
  - PULMONARY EMBOLISM [None]
